FAERS Safety Report 21483445 (Version 1)
Quarter: 2022Q4

REPORT INFORMATION
  Report Type: Spontaneous
  Country: US (occurrence: US)
  Receive Date: 20221020
  Receipt Date: 20221020
  Transmission Date: 20230113
  Serious: Yes (Hospitalization, Other)
  Sender: FDA-Public Use
  Company Number: US-ALLERGAN-2136865US

PATIENT
  Age: 59 Year
  Sex: Male

DRUGS (3)
  1. LINZESS [Suspect]
     Active Substance: LINACLOTIDE
     Indication: Constipation
     Dosage: 145 ?G, QD
     Dates: start: 20211103
  2. LINZESS [Suspect]
     Active Substance: LINACLOTIDE
     Dosage: 290 ?G, QD (3 WEEKS LATER)
     Dates: start: 2021, end: 20211103
  3. LINZESS [Suspect]
     Active Substance: LINACLOTIDE
     Dosage: 145 ?G, QD (FOR3 WEEKS)

REACTIONS (9)
  - Gastrointestinal obstruction [Unknown]
  - Contraindicated product administered [Unknown]
  - Benign prostatic hyperplasia [Not Recovered/Not Resolved]
  - Pain [Recovering/Resolving]
  - Fall [Recovered/Resolved]
  - Back pain [Not Recovered/Not Resolved]
  - Contusion [Not Recovered/Not Resolved]
  - Diarrhoea [Recovered/Resolved]
  - Constipation [Recovering/Resolving]

NARRATIVE: CASE EVENT DATE: 20210101
